FAERS Safety Report 5457309-2 (Version None)
Quarter: 2007Q3

REPORT INFORMATION
  Report Type: 
  Country: None (occurrence: None)
  Receive Date: 20070918
  Receipt Date: 20070906
  Transmission Date: 20080115
  Serious: Yes (Other)
  Sender: FDA-Public Use
  Company Number: US-PFIZER INC-2007066472

PATIENT
  Sex: Female
  Weight: 144.09 kg

DRUGS (15)
  1. LYRICA [Suspect]
     Indication: PAIN
  2. OXYCONTIN [Concomitant]
  3. OXYCODONE HCL [Concomitant]
  4. COZAAR [Concomitant]
  5. CATAPRES [Concomitant]
  6. LASIX [Concomitant]
  7. IMURAN [Concomitant]
  8. BENZONATATE [Concomitant]
  9. PREDNISONE [Concomitant]
  10. INSULIN [Concomitant]
  11. GUAIFENESIN [Concomitant]
  12. CYMBALTA [Concomitant]
  13. LORAZEPAM [Concomitant]
  14. AMBIEN [Concomitant]
  15. NEXIUM [Concomitant]

REACTIONS (1)
  - SUFFOCATION FEELING [None]
